FAERS Safety Report 24988452 (Version 2)
Quarter: 2025Q1

REPORT INFORMATION
  Report Type: Spontaneous
  Country: AR (occurrence: AR)
  Receive Date: 20250220
  Receipt Date: 20250225
  Transmission Date: 20250409
  Serious: Yes (Hospitalization, Other)
  Sender: SANDOZ
  Company Number: AR-002147023-NVSC2025AR003603

PATIENT
  Sex: Female

DRUGS (5)
  1. KISQALI [Suspect]
     Active Substance: RIBOCICLIB
     Indication: Breast cancer
     Dosage: 200 MG, TID
     Route: 065
     Dates: start: 202409
  2. KISQALI [Suspect]
     Active Substance: RIBOCICLIB
     Indication: Metastases to bone
  3. KISQALI [Suspect]
     Active Substance: RIBOCICLIB
     Indication: Metastases to lung
  4. LETROZOLE [Suspect]
     Active Substance: LETROZOLE
     Indication: Product used for unknown indication
     Route: 065
  5. ZOLEDRONIC ACID [Suspect]
     Active Substance: ZOLEDRONIC ACID
     Indication: Product used for unknown indication
     Route: 065

REACTIONS (19)
  - Pulmonary oedema [Unknown]
  - Spinal fracture [Unknown]
  - Influenza [Unknown]
  - Hypoxia [Unknown]
  - Nasopharyngitis [Unknown]
  - Bronchospasm [Unknown]
  - Laboratory test abnormal [Unknown]
  - Metastases to lung [Unknown]
  - Metastases to bone [Unknown]
  - Bone marrow disorder [Unknown]
  - Bone lesion [Unknown]
  - Spinal disorder [Unknown]
  - Chronic obstructive pulmonary disease [Unknown]
  - Mood altered [Unknown]
  - Blood potassium decreased [Unknown]
  - Musculoskeletal chest pain [Unknown]
  - Pain [Unknown]
  - Arthralgia [Unknown]
  - Off label use [Unknown]
